FAERS Safety Report 8883198 (Version 1)
Quarter: 2012Q4

REPORT INFORMATION
  Report Type: 
  Country: US (occurrence: US)
  Receive Date: 20121102
  Receipt Date: 20121102
  Transmission Date: 20130627
  Serious: No
  Sender: FDA-Public Use
  Company Number: US-ABBOTT-12P-163-0972173-00

PATIENT
  Age: 45 Year
  Sex: Male
  Weight: 102.15 kg

DRUGS (1)
  1. BIAXIN [Suspect]
     Indication: UPPER RESPIRATORY TRACT INFECTION
     Dates: start: 201207, end: 201207

REACTIONS (7)
  - Suspiciousness [Recovered/Resolved]
  - Psychotic disorder [Recovered/Resolved]
  - Stress [Recovered/Resolved]
  - Psychomotor hyperactivity [Recovered/Resolved]
  - Heart rate increased [Recovered/Resolved]
  - Dizziness [Recovered/Resolved]
  - Anxiety [Recovered/Resolved]
